FAERS Safety Report 17359372 (Version 2)
Quarter: 2021Q3

REPORT INFORMATION
  Report Type: Spontaneous
  Country: JP (occurrence: JP)
  Receive Date: 20200203
  Receipt Date: 20210705
  Transmission Date: 20211014
  Serious: Yes (Life-Threatening, Other)
  Sender: FDA-Public Use
  Company Number: JP-TEVA-2020-JP-1178846

PATIENT
  Age: 80 Year
  Sex: Male

DRUGS (2)
  1. CISPLATIN. [Suspect]
     Active Substance: CISPLATIN
     Indication: TRANSITIONAL CELL CARCINOMA
     Dosage: 50% OF THE STANDARD DOSE
     Route: 065
  2. GEMCITABINE. [Suspect]
     Active Substance: GEMCITABINE
     Indication: TRANSITIONAL CELL CARCINOMA
     Dosage: STANDARD DOSE
     Route: 065

REACTIONS (8)
  - Fatigue [Unknown]
  - Thrombocytopenia [Recovering/Resolving]
  - Decreased appetite [Unknown]
  - Leukopenia [Recovering/Resolving]
  - Neutropenia [Recovering/Resolving]
  - Myelosuppression [Unknown]
  - Pyrexia [Unknown]
  - Nausea [Unknown]
